FAERS Safety Report 26130260 (Version 1)
Quarter: 2025Q4

REPORT INFORMATION
  Report Type: Spontaneous
  Country: GB (occurrence: None)
  Receive Date: 20251205
  Receipt Date: 20251205
  Transmission Date: 20260118
  Serious: Yes (Other)
  Sender: FDA-CTU
  Company Number: None

PATIENT
  Age: 24 Year
  Sex: Female
  Weight: 54 kg

DRUGS (1)
  1. SYMBICORT [Suspect]
     Active Substance: BUDESONIDE\FORMOTEROL FUMARATE DIHYDRATE
     Indication: Asthma
     Dosage: OTHER QUANTITY : 1 INHALATION(S);?OTHER FREQUENCY : BD + UP TO 4 PRN;
     Route: 055
     Dates: start: 20251202, end: 20251205

REACTIONS (11)
  - Muscle spasms [None]
  - Pain [None]
  - Asthma [None]
  - Agitation [None]
  - Tremor [None]
  - Anger [None]
  - Frustration tolerance decreased [None]
  - Aggression [None]
  - Physical product label issue [None]
  - Respiratory distress [None]
  - Product label confusion [None]

NARRATIVE: CASE EVENT DATE: 20251204
